FAERS Safety Report 7450645-X (Version None)
Quarter: 2011Q2

REPORT INFORMATION
  Report Type: 
  Country: None (occurrence: None)
  Receive Date: 20110502
  Receipt Date: 20110421
  Transmission Date: 20111010
  Serious: Yes (Death)
  Sender: FDA-Public Use
  Company Number: US-CELGENEUS-163-21880-11030320

PATIENT
  Sex: Female

DRUGS (16)
  1. MULTI-VITAMINS [Concomitant]
     Route: 065
  2. CLONAZEPAM [Concomitant]
     Route: 065
  3. METAXALONE [Concomitant]
     Route: 065
  4. OXYCODONE [Concomitant]
     Route: 065
  5. LISINOPRIL [Concomitant]
     Route: 065
  6. TUMS [Concomitant]
     Route: 065
  7. TRAZODONE HCL [Concomitant]
     Route: 065
  8. ASPIRIN [Concomitant]
     Route: 065
  9. KLOR-CON [Concomitant]
     Route: 065
  10. REVLIMID [Suspect]
     Indication: MULTIPLE MYELOMA
     Dosage: 10 MILLIGRAM
     Route: 048
     Dates: start: 20090901
  11. LEVETIRACETAM [Concomitant]
     Route: 065
  12. CALTRATE [Concomitant]
     Route: 065
  13. DEXAMETHASONE [Concomitant]
     Route: 065
  14. FUROSEMIDE [Concomitant]
     Route: 065
  15. GEODON [Concomitant]
     Route: 065
  16. MEGESTROL ACETATE [Concomitant]
     Route: 065

REACTIONS (1)
  - CARDIAC FAILURE CONGESTIVE [None]
